FAERS Safety Report 8105378-3 (Version None)
Quarter: 2012Q1

REPORT INFORMATION
  Report Type: 
  Country: None (occurrence: None)
  Receive Date: 20120201
  Receipt Date: 20120128
  Transmission Date: 20120608
  Serious: Yes (Other)
  Sender: FDA-Public Use
  Company Number: PHHY2012PA007865

PATIENT
  Age: 68 Year
  Sex: Female

DRUGS (3)
  1. CALCIUM [Concomitant]
     Dosage: UNK UKN, UNK
  2. VERAPAMIL [Concomitant]
     Dosage: UNK UKN, UNK
  3. ZOLEDRONOC ACID [Suspect]
     Indication: OSTEOPOROSIS
     Dosage: 5 MG, YEARLY
     Route: 042
     Dates: start: 20101031

REACTIONS (5)
  - DIARRHOEA [None]
  - DIZZINESS [None]
  - VOMITING [None]
  - FEELING ABNORMAL [None]
  - BACK PAIN [None]
